FAERS Safety Report 18062869 (Version 1)
Quarter: 2020Q3

REPORT INFORMATION
  Report Type: Report from Study
  Country: US (occurrence: US)
  Receive Date: 20200724
  Receipt Date: 20200724
  Transmission Date: 20201103
  Serious: Yes (Other)
  Sender: FDA-Public Use
  Company Number: US-HBP-2020US020744

PATIENT
  Sex: Male

DRUGS (1)
  1. VALCHLOR [Suspect]
     Active Substance: MECHLORETHAMINE
     Indication: CUTANEOUS T-CELL LYMPHOMA
     Dosage: THIN FILM, QD
     Route: 061

REACTIONS (5)
  - Paraesthesia [Unknown]
  - Drug ineffective [Unknown]
  - Application site pruritus [Unknown]
  - Disease progression [Unknown]
  - Cutaneous T-cell lymphoma [Not Recovered/Not Resolved]
